FAERS Safety Report 14887152 (Version 1)
Quarter: 2018Q2

REPORT INFORMATION
  Report Type: Spontaneous
  Country: US (occurrence: US)
  Receive Date: 20180513
  Receipt Date: 20180513
  Transmission Date: 20180711
  Serious: No
  Sender: FDA-Public Use
  Company Number: US-JNJFOC-20180425107

PATIENT
  Age: 84 Year
  Sex: Female

DRUGS (3)
  1. TYLENOL [Suspect]
     Active Substance: ACETAMINOPHEN
     Route: 065
  2. CHILDRENS TYLENOL [Concomitant]
     Active Substance: ACETAMINOPHEN
     Indication: NERVE COMPRESSION
     Route: 065
     Dates: start: 201801
  3. TYLENOL [Suspect]
     Active Substance: ACETAMINOPHEN
     Indication: NERVE COMPRESSION
     Route: 065
     Dates: start: 201801

REACTIONS (4)
  - Product label issue [Unknown]
  - Product use in unapproved indication [Unknown]
  - Hypertension [Not Recovered/Not Resolved]
  - Drug administration error [Unknown]

NARRATIVE: CASE EVENT DATE: 2018
